FAERS Safety Report 7753568-1 (Version None)
Quarter: 2011Q3

REPORT INFORMATION
  Report Type: 
  Country: None (occurrence: None)
  Receive Date: 20110915
  Receipt Date: 20110908
  Transmission Date: 20111222
  Serious: Yes (Hospitalization)
  Sender: FDA-Public Use
  Company Number: US-GLAXOSMITHKLINE-A0839044A

PATIENT
  Age: 51 Year
  Sex: Male
  Weight: 127.3 kg

DRUGS (14)
  1. PROZAC [Concomitant]
  2. PLAVIX [Concomitant]
  3. FLUOXETINE [Concomitant]
  4. GLUCOVANCE [Concomitant]
  5. LISINOPRIL [Concomitant]
  6. AVANDIA [Suspect]
     Indication: DIABETES MELLITUS
     Route: 048
     Dates: start: 20000821
  7. AVANDAMET [Suspect]
     Indication: DIABETES MELLITUS
     Dosage: 1TAB PER DAY
     Route: 048
     Dates: start: 20040622, end: 20070301
  8. GLUCOPHAGE [Concomitant]
  9. ASPIRIN [Concomitant]
  10. GLUCOTROL [Concomitant]
  11. CLONIDINE [Concomitant]
  12. LOTREL [Concomitant]
  13. CATAPRES [Concomitant]
  14. HYDROCHLOROTHIAZIDE [Concomitant]

REACTIONS (4)
  - GENERAL PHYSICAL HEALTH DETERIORATION [None]
  - CEREBROVASCULAR ACCIDENT [None]
  - AMNESIA [None]
  - MYOCARDIAL INFARCTION [None]
